FAERS Safety Report 5368836-0 (Version None)
Quarter: 2007Q2

REPORT INFORMATION
  Report Type: 
  Country: None (occurrence: None)
  Receive Date: 20070621
  Receipt Date: 20070621
  Transmission Date: 20071010
  Serious: Yes (Life-Threatening, Hospitalization, Congenital Anomaly)
  Sender: FDA-Public Use
  Company Number: None

PATIENT
  Sex: Male
  Weight: 2.7216 kg

DRUGS (2)
  1. DELALUTIN [Suspect]
     Indication: OVARIAN FAILURE
     Dosage: 250 MG 1 INJECTION/WEEK IM
     Route: 030
  2. ALCOHOL/RED WINE -12.2% ABSOLUTE ALCOHOL UNKNOWN [Suspect]
     Indication: INTENTIONAL DRUG MISUSE
     Dosage: 0.5 OUNCES WINE ONE SIP PO
     Route: 048

REACTIONS (7)
  - ALCOHOL INTERACTION [None]
  - ATRIAL SEPTAL DEFECT [None]
  - ATRIOVENTRICULAR SEPTAL DEFECT [None]
  - CHROMOSOMAL DELETION [None]
  - DRUG EXPOSURE DURING PREGNANCY [None]
  - DRUG INTERACTION [None]
  - EBSTEIN'S ANOMALY [None]
